FAERS Safety Report 5002878-X (Version None)
Quarter: 2006Q2

REPORT INFORMATION
  Report Type: 
  Country: None (occurrence: None)
  Receive Date: 20060512
  Receipt Date: 20060502
  Transmission Date: 20061013
  Serious: Yes (Hospitalization, Other)
  Sender: FDA-Public Use
  Company Number: HQWYE131622DEC05

PATIENT
  Age: 35 Year
  Sex: Male
  Weight: 93.98 kg

DRUGS (21)
  1. RAPAMUNE [Suspect]
     Indication: PROPHYLAXIS AGAINST TRANSPLANT REJECTION
     Dosage: 3 MG 1X PER 1 DAY, ORAL
     Route: 048
     Dates: start: 20051022, end: 20051214
  2. PROGRAF [Concomitant]
  3. PROGRAF [Concomitant]
  4. MEDROL ACETATE [Concomitant]
  5. MEDROL ACETATE [Concomitant]
  6. CELLCEPT [Concomitant]
  7. GANCICLOVIR [Concomitant]
  8. CALCITRIOL [Concomitant]
  9. NEUTRA-PHOS (POTASSIUM PHOSPHATE DIBASIC/POTASSIUM PHOSPHATE MONOBASIC [Concomitant]
  10. ARANESP [Concomitant]
  11. LIPITOR [Concomitant]
  12. MAGNESIUM (MAGNESIUM) [Concomitant]
  13. MAGNESIUM (MAGNESIUM) [Concomitant]
  14. PROTONIX [Concomitant]
  15. LANTUS [Concomitant]
  16. LANTUS [Concomitant]
  17. BACTRIM DS [Concomitant]
  18. BACTRIM DS [Concomitant]
  19. ASPIRIN [Concomitant]
  20. ADALAT CC [Concomitant]
  21. ADALAT CC [Concomitant]

REACTIONS (1)
  - RENAL FAILURE ACUTE [None]
